FAERS Safety Report 24080410 (Version 1)
Quarter: 2024Q3

REPORT INFORMATION
  Report Type: Spontaneous
  Country: US (occurrence: None)
  Receive Date: 20240711
  Receipt Date: 20240711
  Transmission Date: 20241017
  Serious: Yes (Death)
  Sender: Public
  Company Number: None

PATIENT
  Age: 71 Year
  Sex: Male

DRUGS (1)
  1. RILUZOLE [Suspect]
     Active Substance: RILUZOLE
     Indication: Amyotrophic lateral sclerosis
     Dosage: OTHER QUANTITY : 1 TABLET;?FREQUENCY : EVERY 12 HOURS;?

REACTIONS (1)
  - Death [None]

NARRATIVE: CASE EVENT DATE: 20240630
